FAERS Safety Report 8092382-7 (Version None)
Quarter: 2012Q1

REPORT INFORMATION
  Report Type: 
  Country: None (occurrence: None)
  Receive Date: 20120128
  Receipt Date: 20110824
  Transmission Date: 20120608
  Serious: No
  Sender: FDA-Public Use
  Company Number: US-ABBOTT-11P-163-0849186-00

PATIENT
  Age: 38 Year
  Sex: Female

DRUGS (3)
  1. LUPRON [Concomitant]
     Indication: ENDOMETRIOSIS
  2. HUMIRA [Suspect]
     Indication: COLITIS ULCERATIVE
     Dosage: SECONDARY LOADING DOSE
     Dates: start: 20110805
  3. PEPCID [Concomitant]
     Indication: GASTROOESOPHAGEAL REFLUX DISEASE
     Dosage: PRN

REACTIONS (2)
  - INJECTION SITE PAIN [None]
  - INJECTION SITE PAPULE [None]
